FAERS Safety Report 9690899 (Version 1)
Quarter: 2013Q4

REPORT INFORMATION
  Report Type: Spontaneous
  Country: BR (occurrence: BR)
  Receive Date: 20131115
  Receipt Date: 20131115
  Transmission Date: 20140711
  Serious: Yes (Hospitalization)
  Sender: FDA-Public Use
  Company Number: BR-GLAXOSMITHKLINE-A1049494A

PATIENT
  Sex: Female

DRUGS (1)
  1. NIQUITIN [Suspect]
     Indication: SMOKING CESSATION THERAPY
     Route: 065

REACTIONS (1)
  - Hypersensitivity [Recovered/Resolved]
